FAERS Safety Report 17401386 (Version 2)
Quarter: 2020Q1

REPORT INFORMATION
  Report Type: Report from Study
  Country: US (occurrence: US)
  Receive Date: 20200211
  Receipt Date: 20200218
  Transmission Date: 20200409
  Serious: Yes (Death, Hospitalization, Other)
  Sender: FDA-Public Use
  Company Number: NVSC2020US035447

PATIENT
  Age: 68 Year
  Sex: Male
  Weight: 68.76 kg

DRUGS (9)
  1. ENTRESTO [Suspect]
     Active Substance: SACUBITRIL\VALSARTAN
     Indication: PRODUCT USED FOR UNKNOWN INDICATION
     Dosage: 1 DF (24 MG SACUBITRIL /26 MG VALSARTAN), BID
     Route: 048
     Dates: start: 20180123
  2. ATORVASTATIN [Concomitant]
     Active Substance: ATORVASTATIN
     Indication: PRODUCT USED FOR UNKNOWN INDICATION
     Dosage: 40 MG, QD (FOR 90 DAYS)
     Route: 048
  3. HYDROCHLOROTHIAZIDE. [Concomitant]
     Active Substance: HYDROCHLOROTHIAZIDE
     Indication: PRODUCT USED FOR UNKNOWN INDICATION
     Dosage: 25 MG, QD (AS DIRECTED FOR 90 DAYS)
     Route: 048
  4. METOPROLOL SUCCINATE. [Concomitant]
     Active Substance: METOPROLOL SUCCINATE
     Indication: PRODUCT USED FOR UNKNOWN INDICATION
     Dosage: 25 MG (EXTENDED RELEASE (ER) FOR 24 HR), QD (AS DIRECTED FOR 90 DAYS)
     Route: 048
  5. VITAMIN D3 [Concomitant]
     Active Substance: CHOLECALCIFEROL
     Indication: PRODUCT USED FOR UNKNOWN INDICATION
     Dosage: 1 DF (5000 UNITS), QD
     Route: 048
  6. IBUPROFEN. [Concomitant]
     Active Substance: IBUPROFEN
     Indication: PRODUCT USED FOR UNKNOWN INDICATION
     Dosage: 200 MG, PRN
     Route: 065
  7. TAMSULOSIN [Concomitant]
     Active Substance: TAMSULOSIN
     Indication: PRODUCT USED FOR UNKNOWN INDICATION
     Dosage: 2 DF (0.4 MG), QD
     Route: 048
  8. CLOPIDOGREL [Concomitant]
     Active Substance: CLOPIDOGREL BISULFATE
     Indication: PRODUCT USED FOR UNKNOWN INDICATION
     Dosage: 75 MG, QD (AS DIRCETED FOR 90 DAYS)
     Route: 048
  9. SPIRONOLACTONE. [Concomitant]
     Active Substance: SPIRONOLACTONE
     Indication: PRODUCT USED FOR UNKNOWN INDICATION
     Dosage: 25 MG, QD
     Route: 048

REACTIONS (33)
  - Death [Fatal]
  - Circulatory collapse [Unknown]
  - Atrial fibrillation [Unknown]
  - Bradycardia [Unknown]
  - Neutrophil count increased [Unknown]
  - Monocyte count increased [Unknown]
  - Lung infiltration [Unknown]
  - Sinus tachycardia [Unknown]
  - Oedema [Recovered/Resolved]
  - Acute myocardial infarction [Unknown]
  - Electrocardiogram ST segment elevation [Unknown]
  - Basophil count increased [Unknown]
  - Carbon dioxide decreased [Unknown]
  - Cardiomegaly [Unknown]
  - Pulse absent [Unknown]
  - Protein total decreased [Unknown]
  - Pupil fixed [Unknown]
  - Pulseless electrical activity [Unknown]
  - Blood glucose increased [Unknown]
  - Chest pain [Recovered/Resolved]
  - Choking [Unknown]
  - Shock [Unknown]
  - Aspartate aminotransferase increased [Unknown]
  - Total lung capacity decreased [Unknown]
  - Carotid bruit [Unknown]
  - Agonal rhythm [Unknown]
  - Blood albumin decreased [Unknown]
  - Blood creatine phosphokinase increased [Unknown]
  - Cardiac arrest [Unknown]
  - White blood cell count increased [Unknown]
  - Blood creatine phosphokinase MB increased [Unknown]
  - Troponin I increased [Unknown]
  - Blood pressure decreased [Unknown]

NARRATIVE: CASE EVENT DATE: 20180403
